APPROVED DRUG PRODUCT: ONDANSETRON HYDROCHLORIDE
Active Ingredient: ONDANSETRON HYDROCHLORIDE
Strength: EQ 2MG BASE/ML
Dosage Form/Route: INJECTABLE;INJECTION
Application: A202599 | Product #001
Applicant: EUGIA PHARMA SPECIALITIES LTD
Approved: Dec 21, 2012 | RLD: No | RS: No | Type: DISCN